FAERS Safety Report 14526619 (Version 3)
Quarter: 2018Q3

REPORT INFORMATION
  Report Type: Spontaneous
  Country: US (occurrence: US)
  Receive Date: 20180213
  Receipt Date: 20180808
  Transmission Date: 20181010
  Serious: Yes (Other)
  Sender: FDA-Public Use
  Company Number: US-BAYER-2018-027601

PATIENT
  Age: 48 Year
  Sex: Female
  Weight: 102.49 kg

DRUGS (1)
  1. MIRENA [Suspect]
     Active Substance: LEVONORGESTREL
     Indication: CONTRACEPTION
     Dosage: 20 MCG/24HR, CONT
     Route: 015
     Dates: end: 201705

REACTIONS (5)
  - Embedded device [None]
  - Uterine leiomyoma [None]
  - Device breakage [None]
  - Complication of device removal [None]
  - Pelvic pain [None]

NARRATIVE: CASE EVENT DATE: 20180203
